FAERS Safety Report 10394945 (Version 18)
Quarter: 2024Q2

REPORT INFORMATION
  Report Type: Other
  Country: CA (occurrence: None)
  Receive Date: 20140820
  Receipt Date: 20240511
  Transmission Date: 20240716
  Serious: Yes (Death, Other)
  Sender: FDA-Public Use
  Company Number: CA-ROCHE-1131731

PATIENT
  Age: 83 Year
  Sex: Female
  Weight: 72 kg

DRUGS (19)
  1. RITUXAN [Suspect]
     Active Substance: RITUXIMAB
     Indication: Rheumatoid arthritis
     Route: 042
     Dates: end: 20120913
  2. ACTEMRA [Suspect]
     Active Substance: TOCILIZUMAB
     Indication: Rheumatoid arthritis
     Route: 042
     Dates: start: 20130111, end: 2017
  3. ACTEMRA [Suspect]
     Active Substance: TOCILIZUMAB
     Route: 042
     Dates: start: 20140107
  4. ACTEMRA [Suspect]
     Active Substance: TOCILIZUMAB
     Route: 042
     Dates: start: 20140624
  5. ACTEMRA [Suspect]
     Active Substance: TOCILIZUMAB
     Route: 042
     Dates: start: 20150623
  6. ACTEMRA [Suspect]
     Active Substance: TOCILIZUMAB
     Route: 042
     Dates: start: 20150623
  7. BENADRYL [Suspect]
     Active Substance: DIPHENHYDRAMINE HYDROCHLORIDE
     Indication: Premedication
     Route: 048
     Dates: start: 20120913, end: 20120913
  8. XARELTO [Suspect]
     Active Substance: RIVAROXABAN
     Indication: Atrial fibrillation
     Route: 065
     Dates: start: 201312
  9. TYLENOL [Suspect]
     Active Substance: ACETAMINOPHEN
     Indication: Product used for unknown indication
     Route: 065
  10. SOFLAX (CANADA) [Concomitant]
  11. GABAPENTIN [Concomitant]
     Active Substance: GABAPENTIN
  12. OMEPRAZOLE [Concomitant]
     Active Substance: DONEPEZIL HYDROCHLORIDE\OMEPRAZOLE\OMEPRAZOLE MAGNESIUM
  13. WARFARIN [Concomitant]
     Active Substance: WARFARIN
     Indication: Atrial fibrillation
     Dates: end: 201312
  14. ACTONEL [Concomitant]
     Active Substance: RISEDRONATE SODIUM
  15. OMEGA 3 [Concomitant]
     Active Substance: CAPSAICIN
  16. ACETAMINOPHEN [Concomitant]
     Active Substance: ACETAMINOPHEN
     Indication: Premedication
     Route: 048
     Dates: start: 20120913, end: 20120913
  17. METHYLPREDNISOLONE [Concomitant]
     Active Substance: METHYLPREDNISOLONE
     Indication: Premedication
     Route: 042
     Dates: start: 20120913, end: 20120913
  18. PREDNISONE [Concomitant]
     Active Substance: PREDNISONE
     Dosage: INCREASE TO 10MG
  19. METOPROLOL [Concomitant]
     Active Substance: METOPROLOL

REACTIONS (40)
  - Death [Fatal]
  - Cellulitis [Recovering/Resolving]
  - Epistaxis [Recovered/Resolved]
  - Limb injury [Unknown]
  - Skin ulcer [Recovered/Resolved]
  - Scab [Unknown]
  - Blood pressure increased [Unknown]
  - Weight increased [Unknown]
  - Dizziness [Not Recovered/Not Resolved]
  - Fatigue [Not Recovered/Not Resolved]
  - Localised infection [Unknown]
  - Back pain [Not Recovered/Not Resolved]
  - Nasopharyngitis [Unknown]
  - Nausea [Not Recovered/Not Resolved]
  - Arthritis infective [Recovering/Resolving]
  - Rheumatoid arthritis [Not Recovered/Not Resolved]
  - Rheumatoid arthritis [Not Recovered/Not Resolved]
  - Back pain [Not Recovered/Not Resolved]
  - Vomiting [Not Recovered/Not Resolved]
  - Diarrhoea [Not Recovered/Not Resolved]
  - Abscess oral [Recovering/Resolving]
  - Arthropathy [Recovering/Resolving]
  - Dental caries [Unknown]
  - Hallucination [Unknown]
  - Limb injury [Not Recovered/Not Resolved]
  - Dry mouth [Unknown]
  - Ulcer [Recovered/Resolved]
  - Oral infection [Recovered/Resolved]
  - Infusion related reaction [Recovering/Resolving]
  - Skin laceration [Not Recovered/Not Resolved]
  - Arthralgia [Not Recovered/Not Resolved]
  - Arthralgia [Not Recovered/Not Resolved]
  - Heart rate increased [Unknown]
  - Oxygen saturation decreased [Unknown]
  - Skin abrasion [Not Recovered/Not Resolved]
  - Fall [Unknown]
  - Limb mass [Recovered/Resolved]
  - Ill-defined disorder [Unknown]
  - Peripheral swelling [Not Recovered/Not Resolved]
  - Joint swelling [Not Recovered/Not Resolved]

NARRATIVE: CASE EVENT DATE: 20120913
